FAERS Safety Report 9255163 (Version 1)
Quarter: 2013Q2

REPORT INFORMATION
  Report Type: Spontaneous
  Country: US (occurrence: US)
  Receive Date: 20130425
  Receipt Date: 20130425
  Transmission Date: 20140414
  Serious: No
  Sender: FDA-Public Use
  Company Number: US-ASTRAZENECA-2013SE25421

PATIENT
  Sex: Male

DRUGS (2)
  1. PULMICORT FLEXHALER [Suspect]
     Indication: DYSPNOEA
     Dosage: BID
     Route: 055
     Dates: start: 20130315
  2. PULMICORT FLEXHALER [Suspect]
     Indication: DYSPNOEA
     Dosage: BID
     Route: 055
     Dates: start: 20130315

REACTIONS (3)
  - Malaise [Unknown]
  - Circumstance or information capable of leading to medication error [Unknown]
  - Off label use [Unknown]
